FAERS Safety Report 11191614 (Version 1)
Quarter: 2015Q2

REPORT INFORMATION
  Report Type: Spontaneous
  Country: US (occurrence: None)
  Receive Date: 20150612
  Receipt Date: 20150612
  Transmission Date: 20150821
  Serious: Yes (Other)
  Sender: FDA-Public Use
  Company Number: None

PATIENT
  Age: 60 Year
  Sex: Female
  Weight: 102.97 kg

DRUGS (10)
  1. VESICARE [Suspect]
     Active Substance: SOLIFENACIN SUCCINATE
     Indication: HYPERTONIC BLADDER
     Dosage: 1 PILL
     Route: 048
     Dates: start: 20130901, end: 20150611
  2. VITAMIN D [Concomitant]
     Active Substance: CHOLECALCIFEROL
  3. COMPLETE MULTIVITAMIN [Concomitant]
     Active Substance: VITAMINS
  4. BIOTIN [Concomitant]
     Active Substance: BIOTIN
  5. HERBALIFE (BEST DEFENSE) [Concomitant]
  6. IBUPROFEN. [Concomitant]
     Active Substance: IBUPROFEN
  7. CELL-U-LOSE [Concomitant]
  8. FAMOTIDINE. [Concomitant]
     Active Substance: FAMOTIDINE
  9. HERBALIFE [Concomitant]
  10. HERBALIFE TEA [Concomitant]

REACTIONS (2)
  - Adverse drug reaction [None]
  - Dyspepsia [None]

NARRATIVE: CASE EVENT DATE: 20150401
